FAERS Safety Report 8302466-3 (Version None)
Quarter: 2012Q1

REPORT INFORMATION
  Report Type: 
  Country: None (occurrence: None)
  Receive Date: 20120326
  Receipt Date: 20111220
  Transmission Date: 20120608
  Serious: Yes (Other)
  Sender: FDA-Public Use
  Company Number: PHEH2011US01222

PATIENT
  Age: 74 Year
  Sex: Female

DRUGS (12)
  1. METOPROLOL TARTRATE [Concomitant]
  2. BONIVA [Concomitant]
  3. POTASSIUM CHLORIDE [Concomitant]
  4. COQ10 (UBIDECARENONE) [Concomitant]
  5. TASIGNA [Suspect]
     Indication: CHRONIC MYELOID LEUKAEMIA
     Dosage: 200 MG, BID, ORAL
     Route: 048
     Dates: start: 20080801
  6. CEFPROZIL [Concomitant]
  7. OMEPRAZOLE [Concomitant]
  8. CRESTOR [Concomitant]
  9. FUROSEMIDE [Concomitant]
  10. TOPROL-XL [Concomitant]
  11. FISH OIL (FISH OIL) [Concomitant]
  12. PLAVIX [Concomitant]

REACTIONS (5)
  - INTERMITTENT CLAUDICATION [None]
  - DYSPNOEA [None]
  - PLEURAL EFFUSION [None]
  - PAIN IN EXTREMITY [None]
  - WEIGHT INCREASED [None]
